FAERS Safety Report 6082198-5 (Version None)
Quarter: 2009Q1

REPORT INFORMATION
  Report Type: 
  Country: None (occurrence: None)
  Receive Date: 20090218
  Receipt Date: 20090211
  Transmission Date: 20090719
  Serious: Yes (Death)
  Sender: FDA-Public Use
  Company Number: B0556428A

PATIENT
  Age: 71 Year
  Sex: Male
  Weight: 66.3 kg

DRUGS (1)
  1. HYCAMTIN [Suspect]
     Dosage: 4MG PER DAY
     Route: 048
     Dates: start: 20090116, end: 20090119

REACTIONS (1)
  - DEATH [None]
